FAERS Safety Report 7118252-6 (Version None)
Quarter: 2010Q4

REPORT INFORMATION
  Report Type: 
  Country: None (occurrence: None)
  Receive Date: 20101118
  Receipt Date: 20101118
  Transmission Date: 20110411
  Serious: Yes (Hospitalization)
  Sender: FDA-Public Use
  Company Number: None

PATIENT
  Sex: Female
  Weight: 71.3 kg

DRUGS (1)
  1. MULTAQ [Suspect]
     Indication: ARRHYTHMIA
     Dosage: 400MG BID PO
     Route: 048
     Dates: start: 20100303, end: 20100305

REACTIONS (1)
  - ELECTROCARDIOGRAM QT PROLONGED [None]
